FAERS Safety Report 4726025-4 (Version None)
Quarter: 2005Q3

REPORT INFORMATION
  Report Type: 
  Country: None (occurrence: None)
  Receive Date: 20050727
  Receipt Date: 20050718
  Transmission Date: 20060218
  Serious: Yes (Hospitalization)
  Sender: FDA-Public Use
  Company Number: 200512387FR

PATIENT
  Age: 73 Year
  Sex: Male

DRUGS (5)
  1. DAONIL [Suspect]
     Indication: DIABETES MELLITUS NON-INSULIN-DEPENDENT
     Route: 048
     Dates: end: 20050511
  2. ZOCOR [Suspect]
     Indication: HYPERCHOLESTEROLAEMIA
     Route: 048
     Dates: start: 19980215, end: 20050531
  3. PREVISCAN [Suspect]
     Indication: ARRHYTHMIA
     Route: 048
     Dates: start: 20030915, end: 20050511
  4. PREVISCAN [Suspect]
     Indication: ATRIAL FIBRILLATION
     Route: 048
     Dates: start: 20030915, end: 20050511
  5. FLECAINIDE ACETATE [Suspect]
     Route: 048
     Dates: start: 20030915

REACTIONS (5)
  - ASCITES [None]
  - BRONCHITIS [None]
  - HEPATIC CIRRHOSIS [None]
  - PLEURAL EFFUSION [None]
  - SPIDER NAEVUS [None]
